APPROVED DRUG PRODUCT: IMPLANON
Active Ingredient: ETONOGESTREL
Strength: 68MG/IMPLANT
Dosage Form/Route: IMPLANT;IMPLANTATION
Application: N021529 | Product #001
Applicant: ORGANON USA LLC
Approved: Jul 17, 2006 | RLD: No | RS: No | Type: DISCN

PATENTS:
Patent 9757552 | Expires: Jul 28, 2030